FAERS Safety Report 16945168 (Version 1)
Quarter: 2019Q4

REPORT INFORMATION
  Report Type: Report from Study
  Country: GB (occurrence: GB)
  Receive Date: 20191022
  Receipt Date: 20191022
  Transmission Date: 20200122
  Serious: Yes (Other)
  Sender: FDA-Public Use
  Company Number: GB-PFIZER INC-2019450972

PATIENT
  Age: 73 Year
  Sex: Female

DRUGS (14)
  1. TRASTUZUMAB. [Suspect]
     Active Substance: TRASTUZUMAB
     Dosage: 1 UNK, EVERY 3 WEEKS
     Route: 041
     Dates: start: 20160516, end: 20160610
  2. TRASTUZUMAB. [Suspect]
     Active Substance: TRASTUZUMAB
     Dosage: 493.5 MG, EVERY 3 WEEKS
     Route: 041
     Dates: start: 20160923, end: 20160923
  3. PERTUZUMAB. [Suspect]
     Active Substance: PERTUZUMAB
     Dosage: UNK
     Route: 042
     Dates: start: 20160516, end: 20160610
  4. PERTUZUMAB. [Suspect]
     Active Substance: PERTUZUMAB
     Dosage: 420 MG, EVERY 3 WEEKS
     Route: 042
     Dates: start: 20160701
  5. TAXOTERE [Suspect]
     Active Substance: DOCETAXEL
     Dosage: 1 UNK, EVERY 3 WEEKS
     Route: 042
     Dates: start: 20160516, end: 20160610
  6. TRASTUZUMAB. [Suspect]
     Active Substance: TRASTUZUMAB
     Dosage: 1 UNK, EVERY 3 WEEKS
     Route: 041
     Dates: start: 20180312, end: 20180430
  7. TAXOTERE [Suspect]
     Active Substance: DOCETAXEL
     Dosage: 140 MG, EVERY 3 WEEKS
     Route: 042
     Dates: start: 20160701, end: 20160902
  8. TRASTUZUMAB. [Suspect]
     Active Substance: TRASTUZUMAB
     Dosage: 504 MG, EVERY 3 WEEKS
     Route: 041
     Dates: start: 20160902, end: 20160902
  9. TRASTUZUMAB. [Suspect]
     Active Substance: TRASTUZUMAB
     Dosage: 483 MG, EVERY 3 WEEKS
     Route: 041
     Dates: start: 20161018, end: 20170428
  10. TRASTUZUMAB. [Suspect]
     Active Substance: TRASTUZUMAB
     Dosage: 546 MG, EVERY 3 WEEKS
     Route: 041
     Dates: start: 20180521, end: 20180903
  11. TRASTUZUMAB. [Suspect]
     Active Substance: TRASTUZUMAB
     Dosage: 504 MG, EVERY 3 WEEKS
     Route: 041
     Dates: start: 20170522, end: 20180219
  12. ONTRUZANT [Suspect]
     Active Substance: TRASTUZUMAB-DTTB
     Dosage: 588 MG, EVERY 3 WEEKS
     Route: 042
     Dates: start: 20180924
  13. TRASTUZUMAB. [Suspect]
     Active Substance: TRASTUZUMAB
     Dosage: 525 MG, EVERY 3 WEEKS
     Route: 041
     Dates: start: 20160701, end: 20160812
  14. ARIMIDEX [Suspect]
     Active Substance: ANASTROZOLE
     Dosage: 1 UNK, DAILY
     Route: 048
     Dates: start: 20161012

REACTIONS (1)
  - Cardiac failure [Not Recovered/Not Resolved]

NARRATIVE: CASE EVENT DATE: 20190805
